FAERS Safety Report 5135158-2 (Version None)
Quarter: 2006Q4

REPORT INFORMATION
  Report Type: 
  Country: None (occurrence: None)
  Receive Date: 20060831
  Receipt Date: 20051215
  Transmission Date: 20070319
  Serious: Yes (Other)
  Sender: FDA-Public Use
  Company Number: 2005169753

PATIENT
  Age: 83 Year
  Sex: Male

DRUGS (7)
  1. DETROL LA [Suspect]
     Indication: HYPERTONIC BLADDER
     Dosage: 4 MG (4 MG , 1 IN 1 D ), ORAL
     Route: 048
     Dates: start: 20051213, end: 20051214
  2. GRAPE SEED (GRAPE SEED) [Suspect]
     Indication: ILL-DEFINED DISORDER
     Dosage: UNK, UNKNOWN
  3. ALL OTHER NON-THERAPEUTIC PRODUCTS (ALL OTHER NON-THERAPEUTIC PRODUCTS [Suspect]
     Indication: ILL-DEFINED DISORDER
     Dosage: UNK, UNKNOWN
  4. LIPITOR [Concomitant]
  5. GLYBURIDE [Concomitant]
  6. PLAVIX [Concomitant]
  7. ALTACE [Concomitant]

REACTIONS (2)
  - DYSURIA [None]
  - FOOD INTERACTION [None]
